FAERS Safety Report 12309527 (Version 2)
Quarter: 2016Q2

REPORT INFORMATION
  Report Type: Spontaneous
  Country: US (occurrence: US)
  Receive Date: 20160427
  Receipt Date: 20160512
  Transmission Date: 20160815
  Serious: Yes (Other)
  Sender: FDA-Public Use
  Company Number: US-PFIZER INC-2016229323

PATIENT
  Age: 71 Year
  Sex: Male

DRUGS (1)
  1. LYRICA [Suspect]
     Active Substance: PREGABALIN
     Indication: DIABETIC NEUROPATHY
     Dosage: THREE PILLS PER DAY OF 50 MG EACH
     Dates: start: 20160401

REACTIONS (4)
  - Peripheral swelling [Unknown]
  - Urinary retention [Unknown]
  - Swelling [Unknown]
  - Swelling face [Unknown]
